FAERS Safety Report 7542529-3 (Version None)
Quarter: 2011Q2

REPORT INFORMATION
  Report Type: 
  Country: None (occurrence: None)
  Receive Date: 20110524
  Receipt Date: 20110323
  Transmission Date: 20111010
  Serious: No
  Sender: FDA-Public Use
  Company Number: 025198

PATIENT
  Sex: Female
  Weight: 113.9 kg

DRUGS (5)
  1. ULTRACET [Concomitant]
  2. THEOPHYLLINE [Concomitant]
  3. CIMZIA [Suspect]
     Indication: CROHN'S DISEASE
     Dosage: (SUBCUTANEOUS), (200 MG 1X/MONTH SUBCUTANEOUS)
     Route: 058
     Dates: start: 20100101
  4. RELAFEN [Concomitant]
  5. NEXIUM /01479303/ [Concomitant]

REACTIONS (8)
  - NAUSEA [None]
  - CONSTIPATION [None]
  - NASOPHARYNGITIS [None]
  - MUSCULOSKELETAL PAIN [None]
  - FATIGUE [None]
  - SINUSITIS [None]
  - FEELING ABNORMAL [None]
  - HEADACHE [None]
